FAERS Safety Report 13681524 (Version 1)
Quarter: 2017Q2

REPORT INFORMATION
  Report Type: Spontaneous
  Country: US (occurrence: US)
  Receive Date: 20170623
  Receipt Date: 20170623
  Transmission Date: 20170830
  Serious: No
  Sender: FDA-Public Use
  Company Number: US-IPSEN BIOPHARMACEUTICALS, INC.-2016-01532

PATIENT
  Sex: Female

DRUGS (1)
  1. DYSPORT [Suspect]
     Active Substance: ABOBOTULINUMTOXINA
     Indication: SKIN COSMETIC PROCEDURE
     Dosage: NOT REPORTED
     Route: 065

REACTIONS (11)
  - Dizziness [Unknown]
  - Neck pain [Unknown]
  - Headache [Unknown]
  - Injection site pain [Unknown]
  - Eye irritation [Unknown]
  - Lacrimation increased [Unknown]
  - Palpitations [Unknown]
  - Hypersensitivity [Unknown]
  - Diarrhoea [Unknown]
  - Vision blurred [Unknown]
  - Oral discomfort [Unknown]
